FAERS Safety Report 10100775 (Version 1)
Quarter: 2014Q2

REPORT INFORMATION
  Report Type: Spontaneous
  Country: US (occurrence: US)
  Receive Date: 20140423
  Receipt Date: 20140423
  Transmission Date: 20141212
  Serious: No
  Sender: FDA-Public Use
  Company Number: US-BAXTER-2014BAX018682

PATIENT
  Sex: 0

DRUGS (1)
  1. 10% DEXTROSE INJECTION, USP [Suspect]
     Indication: WRONG DRUG ADMINISTERED
     Route: 042
     Dates: start: 20140408, end: 20140408

REACTIONS (3)
  - Drug dispensing error [Unknown]
  - Wrong drug administered [Recovered/Resolved]
  - No adverse event [Recovered/Resolved]
